FAERS Safety Report 9107735 (Version 1)
Quarter: 2013Q1

REPORT INFORMATION
  Report Type: Spontaneous
  Country: US (occurrence: US)
  Receive Date: 20130221
  Receipt Date: 20130221
  Transmission Date: 20140127
  Serious: No
  Sender: FDA-Public Use
  Company Number: US-009507513-2012SP006773

PATIENT
  Sex: Female

DRUGS (2)
  1. CORICIDIN COUGH + CHEST MAXIMUM [Suspect]
     Indication: PRODUCT USED FOR UNKNOWN INDICATION
     Dosage: 1 DF, ONCE
     Route: 048
     Dates: start: 20120122
  2. CORICIDIN COUGH + CHEST MAXIMUM [Suspect]
     Dosage: 1 DF, ONCE
     Route: 048
     Dates: start: 20120123

REACTIONS (4)
  - Urticaria [Recovered/Resolved]
  - Swelling face [Recovered/Resolved]
  - Erythema [Recovered/Resolved]
  - Expired drug administered [Unknown]
